FAERS Safety Report 6600192-X (Version None)
Quarter: 2010Q1

REPORT INFORMATION
  Report Type: 
  Country: None (occurrence: None)
  Receive Date: 20100224
  Receipt Date: 20100216
  Transmission Date: 20100710
  Serious: Yes (Life-Threatening, Hospitalization)
  Sender: FDA-Public Use
  Company Number: B0633884A

PATIENT
  Age: 51 Year
  Sex: Male
  Weight: 90 kg

DRUGS (4)
  1. CEFUROXIME [Suspect]
     Indication: PROPHYLAXIS
     Route: 042
     Dates: start: 20091209
  2. ATRACURIUM [Suspect]
     Route: 042
     Dates: start: 20091209
  3. CLEXANE [Concomitant]
     Indication: DEEP VEIN THROMBOSIS
     Route: 058
     Dates: start: 20091208, end: 20091213
  4. PARACETAMOL [Concomitant]
     Indication: PAIN
     Route: 048
     Dates: start: 20091209, end: 20091213

REACTIONS (2)
  - HYPOTENSION [None]
  - RASH [None]
